FAERS Safety Report 23520598 (Version 1)
Quarter: 2024Q1

REPORT INFORMATION
  Report Type: 
  Country: None (occurrence: None)
  Receive Date: 20240214
  Receipt Date: 20240214
  Transmission Date: 20240409
  Serious: No
  Sender: FDA-Public Use
  Company Number: JP-CHUGAI-2023038618

PATIENT
  Weight: 47 kg

DRUGS (1)
  1. ENSPRYNG [Suspect]
     Active Substance: SATRALIZUMAB-MWGE
     Dosage: UNK
     Dates: start: 20230502

REACTIONS (3)
  - Uterine cancer [None]
  - Metastases to ovary [None]
  - Pyrexia [None]

NARRATIVE: CASE EVENT DATE: 20230801
